FAERS Safety Report 5573470-3 (Version None)
Quarter: 2007Q4

REPORT INFORMATION
  Report Type: 
  Country: None (occurrence: None)
  Receive Date: 20071226
  Receipt Date: 20071211
  Transmission Date: 20080405
  Serious: Yes (Other)
  Sender: FDA-Public Use
  Company Number: US-BAYER-200713286BCC

PATIENT
  Age: 35 Year
  Sex: Female
  Weight: 43 kg

DRUGS (7)
  1. RID LICE KILLING SHAMPOO + CONDITIONER [Suspect]
     Indication: LICE INFESTATION
     Route: 061
     Dates: start: 20071001
  2. RID LICE + EGG COMB OUT GEL [Suspect]
     Indication: LICE INFESTATION
     Route: 061
     Dates: start: 20071001
  3. RID COMB [Suspect]
     Indication: LICE INFESTATION
     Route: 061
     Dates: start: 20071001
  4. RID HOME LICE CONTROL SPRAY [Suspect]
     Indication: LICE INFESTATION
     Dates: start: 20071002
  5. RID HOME LICE CONTROL SPRAY [Suspect]
     Dates: start: 20071003
  6. WELLBUTRIN [Concomitant]
  7. RITALIN [Concomitant]

REACTIONS (6)
  - APHONIA [None]
  - CHEST DISCOMFORT [None]
  - COUGH [None]
  - DYSGEUSIA [None]
  - DYSPHONIA [None]
  - PRODUCTIVE COUGH [None]
